FAERS Safety Report 9876527 (Version 2)
Quarter: 2014Q1

REPORT INFORMATION
  Report Type: Report from Study
  Country: DE (occurrence: DE)
  Receive Date: 20140206
  Receipt Date: 20140307
  Transmission Date: 20141002
  Serious: Yes (Hospitalization)
  Sender: FDA-Public Use
  Company Number: DE-ROCHE-1344066

PATIENT
  Age: 72 Year
  Sex: Male

DRUGS (6)
  1. RITUXIMAB [Suspect]
     Indication: RHEUMATOID ARTHRITIS
     Route: 065
     Dates: start: 20070612
  2. RITUXIMAB [Suspect]
     Route: 065
     Dates: start: 20080529
  3. RITUXIMAB [Suspect]
     Route: 065
     Dates: start: 20090113, end: 20090824
  4. TOCILIZUMAB [Suspect]
     Indication: RHEUMATOID ARTHRITIS
     Route: 065
     Dates: start: 200905, end: 200908
  5. HYDROXYCHLOROQUINE [Suspect]
     Indication: RHEUMATOID ARTHRITIS
     Route: 065
     Dates: start: 2011, end: 2011
  6. HYDROXYCHLOROQUINE [Suspect]
     Route: 065
     Dates: start: 2013

REACTIONS (4)
  - Prostate cancer [Unknown]
  - Urinary tract infection [Not Recovered/Not Resolved]
  - Acute myocardial infarction [Unknown]
  - Coronary artery disease [Unknown]
